FAERS Safety Report 6621091-3 (Version None)
Quarter: 2010Q1

REPORT INFORMATION
  Report Type: 
  Country: None (occurrence: None)
  Receive Date: 20100309
  Receipt Date: 20100301
  Transmission Date: 20100710
  Serious: Yes (Other)
  Sender: FDA-Public Use
  Company Number: B0637648A

PATIENT
  Age: 74 Year
  Sex: Male

DRUGS (1)
  1. CEFTAZIDINE [Suspect]
     Indication: DRUG USE FOR UNKNOWN INDICATION
     Route: 042
     Dates: start: 20090701

REACTIONS (5)
  - ERYTHEMA [None]
  - NECROSIS [None]
  - RASH [None]
  - STOMATITIS NECROTISING [None]
  - TOXIC EPIDERMAL NECROLYSIS [None]
